FAERS Safety Report 9674130 (Version 2)
Quarter: 2013Q4

REPORT INFORMATION
  Report Type: Spontaneous
  Country: US (occurrence: US)
  Receive Date: 20131106
  Receipt Date: 20131106
  Transmission Date: 20140711
  Serious: Yes (Other)
  Sender: FDA-Public Use
  Company Number: US-AMGEN-USASP2013075650

PATIENT
  Age: 76 Year
  Sex: Female
  Weight: 61.68 kg

DRUGS (2)
  1. ENBREL [Suspect]
     Indication: RHEUMATOID ARTHRITIS
     Dosage: 50 MG, QWK
     Route: 058
     Dates: start: 2006
  2. METHOTREXATE [Suspect]
     Indication: RHEUMATOID ARTHRITIS
     Dosage: 12.5 MG, UNK
     Route: 048

REACTIONS (5)
  - Candida infection [Not Recovered/Not Resolved]
  - Oral pain [Not Recovered/Not Resolved]
  - Tenderness [Not Recovered/Not Resolved]
  - Cheilitis [Not Recovered/Not Resolved]
  - Fungal infection [Not Recovered/Not Resolved]
